FAERS Safety Report 6758981-7 (Version None)
Quarter: 2010Q2

REPORT INFORMATION
  Report Type: 
  Country: None (occurrence: None)
  Receive Date: 20100607
  Receipt Date: 20100531
  Transmission Date: 20101027
  Serious: Yes (Other)
  Sender: FDA-Public Use
  Company Number: BR-BRISTOL-MYERS SQUIBB COMPANY-15133739

PATIENT
  Age: 71 Year
  Sex: Male
  Weight: 88 kg

DRUGS (2)
  1. APROZIDE [Suspect]
     Indication: HYPERTENSION
     Dosage: TABLETS
     Route: 048
     Dates: start: 20070101
  2. METFORMIN HCL [Concomitant]
     Indication: DIABETES MELLITUS
     Route: 048

REACTIONS (4)
  - CATARACT [None]
  - GLAUCOMA [None]
  - PROSTATE CANCER [None]
  - WEIGHT DECREASED [None]
